FAERS Safety Report 10978685 (Version 1)
Quarter: 2015Q2

REPORT INFORMATION
  Report Type: Spontaneous
  Country: BE (occurrence: BE)
  Receive Date: 20150402
  Receipt Date: 20150402
  Transmission Date: 20150821
  Serious: Yes (Life-Threatening, Hospitalization)
  Sender: FDA-Public Use
  Company Number: BE-PFIZER INC-2015114065

PATIENT
  Age: 93 Year
  Sex: Female
  Weight: 51 kg

DRUGS (8)
  1. PROLOPA [Concomitant]
     Active Substance: BENSERAZIDE\LEVODOPA
  2. GLUCOPHAGE [Suspect]
     Active Substance: METFORMIN HYDROCHLORIDE
     Dosage: 500 MG, DAILY
     Dates: end: 20150202
  3. FRAXIPARINE [Concomitant]
     Active Substance: NADROPARIN CALCIUM
     Dosage: UNK
     Dates: start: 20150126, end: 20150202
  4. AMLOR [Concomitant]
     Active Substance: AMLODIPINE BESYLATE
  5. TEMESTA [Concomitant]
     Active Substance: LORAZEPAM
     Dosage: UNK
  6. ISOTEN [Concomitant]
     Dosage: UNK
  7. PANTOMED [Suspect]
     Active Substance: DEXPANTHENOL
     Dosage: 20 MG, DAILY
     Route: 048
     Dates: start: 20150127, end: 20150209
  8. STEOVIT D3 [Concomitant]
     Dosage: UNK
     Dates: start: 20150126, end: 20150209

REACTIONS (1)
  - Tubulointerstitial nephritis [Recovering/Resolving]

NARRATIVE: CASE EVENT DATE: 20150130
